FAERS Safety Report 8535212-9 (Version None)
Quarter: 2012Q3

REPORT INFORMATION
  Report Type: 
  Country: None (occurrence: None)
  Receive Date: 20120724
  Receipt Date: 20120705
  Transmission Date: 20120928
  Serious: No
  Sender: FDA-Public Use
  Company Number: US-ROXANE LABORATORIES, INC.-2012-RO-01284RO

PATIENT
  Sex: Female
  Weight: 50 kg

DRUGS (3)
  1. METHADONE HCL [Suspect]
     Indication: PAIN
     Dosage: 15 MG
     Route: 048
     Dates: start: 20040101
  2. ANTI-HYPERTENSIVE [Concomitant]
     Indication: HYPERTENSION
  3. ACETAMINOPHEN AND HYDROCODONE BITARTRATE [Suspect]
     Indication: PAIN
     Route: 048
     Dates: start: 20111011

REACTIONS (2)
  - FIBROMYALGIA [None]
  - DRUG INEFFECTIVE [None]
